FAERS Safety Report 18941012 (Version 1)
Quarter: 2021Q1

REPORT INFORMATION
  Report Type: Spontaneous
  Country: US (occurrence: US)
  Receive Date: 20210225
  Receipt Date: 20210225
  Transmission Date: 20210420
  Serious: Yes (Other)
  Sender: FDA-Public Use
  Company Number: None

PATIENT
  Age: 41 Year
  Weight: 108.86 kg

DRUGS (1)
  1. COSENTYX [Suspect]
     Active Substance: SECUKINUMAB
     Indication: HIDRADENITIS
     Route: 058
     Dates: start: 20210204

REACTIONS (3)
  - Impaired gastric emptying [None]
  - Condition aggravated [None]
  - Fungal infection [None]

NARRATIVE: CASE EVENT DATE: 20210225
